FAERS Safety Report 16033619 (Version 1)
Quarter: 2019Q1

REPORT INFORMATION
  Report Type: Spontaneous
  Country: US (occurrence: US)
  Receive Date: 20190305
  Receipt Date: 20190305
  Transmission Date: 20190418
  Serious: No
  Sender: FDA-Public Use
  Company Number: US-IMPAX LABORATORIES, LLC-2018-IPXL-02488

PATIENT
  Age: 69 Year
  Sex: Female

DRUGS (1)
  1. RYTARY [Suspect]
     Active Substance: CARBIDOPA\LEVODOPA
     Indication: PARKINSON^S DISEASE
     Dosage: 23.75/95 MG, THREE CAPSULES, THREE TIMES A DAY (7AM, 12 PM AND 4 PM)
     Route: 065
     Dates: end: 2018

REACTIONS (6)
  - Irritability [Unknown]
  - Panic attack [Unknown]
  - Sleep disorder [Unknown]
  - Decreased appetite [Unknown]
  - Feeling jittery [Unknown]
  - Headache [Unknown]

NARRATIVE: CASE EVENT DATE: 2018
